FAERS Safety Report 6168212-7 (Version None)
Quarter: 2009Q2

REPORT INFORMATION
  Report Type: 
  Country: None (occurrence: None)
  Receive Date: 20090423
  Receipt Date: 20090423
  Transmission Date: 20091009
  Serious: Yes (Other)
  Sender: FDA-Public Use
  Company Number: None

PATIENT
  Age: 50 Year
  Sex: Female
  Weight: 58.9676 kg

DRUGS (3)
  1. AVELOX [Suspect]
     Indication: BRONCHITIS
     Dosage: 400MG QD PO
     Route: 048
     Dates: start: 20081026, end: 20081105
  2. BIAXIN [Suspect]
     Indication: BRONCHITIS
     Dosage: 500MG BID PO
     Route: 048
     Dates: start: 20081115, end: 20081125
  3. LEVAQUN [Concomitant]

REACTIONS (2)
  - TENDON DISORDER [None]
  - TENOSYNOVITIS [None]
